FAERS Safety Report 8889478 (Version 1)
Quarter: 2012Q4

REPORT INFORMATION
  Report Type: Spontaneous
  Country: GB (occurrence: None)
  Receive Date: 20121031
  Receipt Date: 20121031
  Transmission Date: 20130627
  Serious: Yes (Other)
  Sender: FDA-Public Use
  Company Number: 2012000230

PATIENT
  Age: 63 Year
  Sex: Male
  Weight: 82 kg

DRUGS (2)
  1. ACEON [Suspect]
     Indication: HYPERTENSION
     Dates: start: 1992
  2. LOSEC [Suspect]
     Dates: start: 1997

REACTIONS (2)
  - Hypocalcaemia [None]
  - Hypovitaminosis [None]
